FAERS Safety Report 8020384-5 (Version None)
Quarter: 2012Q1

REPORT INFORMATION
  Report Type: 
  Country: None (occurrence: None)
  Receive Date: 20120103
  Receipt Date: 20111222
  Transmission Date: 20120608
  Serious: Yes (Hospitalization)
  Sender: FDA-Public Use
  Company Number: US-ELI_LILLY_AND_COMPANY-US201012004972

PATIENT
  Sex: Female

DRUGS (19)
  1. CALCIUM ACETATE [Concomitant]
     Dosage: UNK, DAILY (1/D)
  2. CALCIUM ACETATE [Concomitant]
     Dosage: 600 MG, QD
  3. VITAMIN D [Concomitant]
     Dosage: 2000 U, QD
  4. FLECAINIDE ACETATE [Concomitant]
     Dosage: 75 MG, BID
  5. FORTEO [Suspect]
     Dosage: 20 UG, QD
     Route: 058
  6. EXFORGE [Concomitant]
     Dosage: 5 MG-160, QD
  7. FORTEO [Suspect]
     Indication: OSTEOPOROSIS
     Dosage: 20 UG, QD
     Route: 058
     Dates: start: 20100728
  8. FORTEO [Suspect]
     Dosage: 20 UG, QD
     Route: 058
     Dates: end: 20110324
  9. FORTEO [Suspect]
     Dosage: 20 UG, QD
     Route: 058
     Dates: start: 20110328
  10. FORTEO [Suspect]
     Dosage: 20 UG, QD
     Route: 058
  11. FORTEO [Suspect]
     Dosage: 20 UG, QD
     Route: 058
     Dates: start: 20100728
  12. CALCIUM ACETATE [Concomitant]
     Dosage: 300 MG, QD
  13. ASPIRIN [Concomitant]
     Dosage: 325 MG, QD
  14. FORTEO [Suspect]
     Dosage: 20 UG, QD
     Route: 058
  15. FORTEO [Suspect]
     Dosage: 20 UG, QD
     Route: 058
  16. FORTEO [Suspect]
     Dosage: 20 UG, QD
     Route: 058
  17. CALCIUM ACETATE [Concomitant]
     Dosage: UNK, DAILY (1/D)
  18. FORTEO [Suspect]
     Dosage: 20 UG, QD
     Route: 058
  19. FISH OIL [Concomitant]
     Dosage: 1000 MG, TID

REACTIONS (31)
  - MOTION SICKNESS [None]
  - RASH MACULAR [None]
  - VERTIGO [None]
  - BONE PAIN [None]
  - SCIATIC NERVE INJURY [None]
  - ASTHENIA [None]
  - MUSCLE SPASMS [None]
  - MOVEMENT DISORDER [None]
  - PAIN IN EXTREMITY [None]
  - FALL [None]
  - PHOTOPHOBIA [None]
  - ARTHRALGIA [None]
  - INNER EAR DISORDER [None]
  - SPINAL DISORDER [None]
  - FATIGUE [None]
  - MUSCULOSKELETAL PAIN [None]
  - HEAD INJURY [None]
  - EYE DISORDER [None]
  - MUSCULOSKELETAL STIFFNESS [None]
  - PAIN [None]
  - MUSCULOSKELETAL DISCOMFORT [None]
  - FEELING ABNORMAL [None]
  - BLOOD CALCIUM INCREASED [None]
  - DIPLOPIA [None]
  - CONTUSION [None]
  - BACK PAIN [None]
  - BALANCE DISORDER [None]
  - LIMB ASYMMETRY [None]
  - DIZZINESS [None]
  - SPINAL OSTEOARTHRITIS [None]
  - RASH [None]
